FAERS Safety Report 7498654-9 (Version None)
Quarter: 2011Q2

REPORT INFORMATION
  Report Type: 
  Country: None (occurrence: None)
  Receive Date: 20110524
  Receipt Date: 20110517
  Transmission Date: 20111010
  Serious: Yes (Hospitalization)
  Sender: FDA-Public Use
  Company Number: SE-ASTELLAS-2011EU002834

PATIENT
  Sex: Female

DRUGS (6)
  1. VISCOTEARS [Concomitant]
     Dosage: UNK
     Route: 065
  2. CELLCEPT [Concomitant]
     Indication: ORGAN TRANSPLANT
     Dosage: UNK
     Route: 065
     Dates: start: 20110209
  3. PROGRAF [Suspect]
     Indication: ORGAN TRANSPLANT
     Dosage: 5 MG, UNKNOWN/D
     Route: 048
     Dates: start: 20110209, end: 20110323
  4. CYCLOSPORINE [Concomitant]
     Dosage: 10 MG/ML, UNKNOWN/D
     Route: 065
  5. DEXAMETHASONE [Concomitant]
     Dosage: 1 MG/ML, UNKNOWN/D
     Route: 065
  6. PREDNISOLONE [Concomitant]
     Dosage: 5 MG, UNKNOWN/D
     Route: 065

REACTIONS (1)
  - COLOUR BLINDNESS [None]
